FAERS Safety Report 24738944 (Version 2)
Quarter: 2024Q4

REPORT INFORMATION
  Report Type: Spontaneous
  Country: PL (occurrence: PL)
  Receive Date: 20241216
  Receipt Date: 20241223
  Transmission Date: 20250115
  Serious: Yes (Other)
  Sender: MYLAN
  Company Number: PL-002147023-NVSC2024PL223815

PATIENT
  Age: 34 Year
  Sex: Male

DRUGS (4)
  1. DIMETHYL FUMARATE [Suspect]
     Active Substance: DIMETHYL FUMARATE
     Indication: Product used for unknown indication
     Dosage: UNK
     Route: 065
  2. KESIMPTA [Suspect]
     Active Substance: OFATUMUMAB
     Indication: Multiple sclerosis
     Dosage: UNK
     Route: 065
     Dates: start: 202310
  3. BETAFERON [Suspect]
     Active Substance: INTERFERON BETA-1B
     Indication: Multiple sclerosis
     Dosage: UNK
     Route: 065
     Dates: end: 2016
  4. OZANIMOD [Concomitant]
     Active Substance: OZANIMOD
     Indication: Product used for unknown indication
     Dosage: UNK
     Route: 065

REACTIONS (4)
  - Multiple sclerosis [Unknown]
  - Influenza like illness [Unknown]
  - Product dose omission issue [Unknown]
  - Treatment failure [Unknown]
